FAERS Safety Report 14972429 (Version 3)
Quarter: 2018Q3

REPORT INFORMATION
  Report Type: Spontaneous
  Country: JP (occurrence: JP)
  Receive Date: 20180605
  Receipt Date: 20180718
  Transmission Date: 20181010
  Serious: Yes (Congenital Anomaly)
  Sender: FDA-Public Use
  Company Number: JP-ASTELLAS-2018JP010185

PATIENT
  Sex: Female
  Weight: 2 kg

DRUGS (16)
  1. PREDNISOLONE. [Concomitant]
     Active Substance: PREDNISOLONE
     Dosage: TAPERED
     Route: 064
  2. ALFAROL [Concomitant]
     Active Substance: ALFACALCIDOL
     Indication: FOETAL EXPOSURE DURING PREGNANCY
     Dosage: 0.5 ?G, ONCE DAILY, IN THE MORNING
     Route: 064
     Dates: end: 20160412
  3. PROGRAF [Suspect]
     Active Substance: TACROLIMUS\TACROLIMUS ANHYDROUS
     Dosage: INCREASED
     Route: 064
     Dates: start: 2016, end: 20160901
  4. PREDNISOLONE. [Concomitant]
     Active Substance: PREDNISOLONE
     Route: 064
  5. PREDNISOLONE. [Concomitant]
     Active Substance: PREDNISOLONE
     Route: 064
     Dates: start: 201203
  6. BAYASPIRIN [Concomitant]
     Active Substance: ASPIRIN
     Indication: FOETAL EXPOSURE DURING PREGNANCY
     Dosage: 100 MG, ONCE DAILY, IN THE MORNING
     Route: 064
     Dates: end: 20160525
  7. PROGRAF [Suspect]
     Active Substance: TACROLIMUS\TACROLIMUS ANHYDROUS
     Indication: FOETAL EXPOSURE DURING PREGNANCY
     Dosage: 2 MG, ONCE DAILY, IN THE EVENING
     Route: 064
     Dates: start: 201203, end: 2016
  8. PREDNISOLONE. [Concomitant]
     Active Substance: PREDNISOLONE
     Route: 064
  9. NEXIUM [Concomitant]
     Active Substance: ESOMEPRAZOLE MAGNESIUM
     Indication: FOETAL EXPOSURE DURING PREGNANCY
     Dosage: 10 MG, ONCE DAILY, IN THE MORNING
     Route: 064
     Dates: end: 20160302
  10. PREDNISOLONE. [Concomitant]
     Active Substance: PREDNISOLONE
     Indication: FOETAL EXPOSURE DURING PREGNANCY
     Route: 064
     Dates: start: 200009
  11. BONOTEO [Concomitant]
     Active Substance: MINODRONIC ACID
     Indication: FOETAL EXPOSURE DURING PREGNANCY
     Route: 064
     Dates: end: 20160302
  12. PREDNISOLONE. [Concomitant]
     Active Substance: PREDNISOLONE
     Route: 064
  13. PREDNISOLONE. [Concomitant]
     Active Substance: PREDNISOLONE
     Route: 064
  14. PREDNISOLONE. [Concomitant]
     Active Substance: PREDNISOLONE
     Route: 064
  15. MUCOSTA [Concomitant]
     Active Substance: REBAMIPIDE
     Indication: FOETAL EXPOSURE DURING PREGNANCY
     Dosage: 100 MG, TWICE DAILY, IN THE MORNING AND EVENING
     Route: 064
  16. FERROUS CITRATE [Concomitant]
     Active Substance: FERROUS CITRATE
     Indication: FOETAL EXPOSURE DURING PREGNANCY
     Dosage: 50 MG, TWICE DAILY, IN THE MORNING AND EVENING
     Route: 064
     Dates: start: 20160608

REACTIONS (1)
  - Foetal growth restriction [Unknown]

NARRATIVE: CASE EVENT DATE: 2016
